FAERS Safety Report 13682919 (Version 1)
Quarter: 2017Q2

REPORT INFORMATION
  Report Type: Spontaneous
  Country: US (occurrence: US)
  Receive Date: 20170623
  Receipt Date: 20170623
  Transmission Date: 20170830
  Serious: No
  Sender: FDA-Public Use
  Company Number: US-IPSEN BIOPHARMACEUTICALS, INC.-2016-08029

PATIENT
  Age: 57 Year
  Sex: Female
  Weight: 63.5 kg

DRUGS (4)
  1. LINZESS [Concomitant]
     Active Substance: LINACLOTIDE
     Indication: CONSTIPATION
     Dates: start: 201609
  2. DYSPORT [Suspect]
     Active Substance: ABOBOTULINUMTOXINA
     Indication: SKIN WRINKLING
     Dosage: 40 UNITS
     Route: 065
     Dates: start: 20160921, end: 20160921
  3. LISINOPRIL. [Concomitant]
     Active Substance: LISINOPRIL
     Indication: BLOOD PRESSURE INCREASED
  4. DYSPORT [Suspect]
     Active Substance: ABOBOTULINUMTOXINA
     Indication: PRODUCT USE IN UNAPPROVED INDICATION

REACTIONS (5)
  - Circumoral oedema [Not Recovered/Not Resolved]
  - Oedema mucosal [Not Recovered/Not Resolved]
  - Injection site swelling [Not Recovered/Not Resolved]
  - Mouth swelling [Not Recovered/Not Resolved]
  - Pruritus [Not Recovered/Not Resolved]

NARRATIVE: CASE EVENT DATE: 201609
